FAERS Safety Report 20161479 (Version 1)
Quarter: 2021Q4

REPORT INFORMATION
  Report Type: Spontaneous
  Country: US (occurrence: US)
  Receive Date: 20211208
  Receipt Date: 20211208
  Transmission Date: 20220303
  Serious: No
  Sender: FDA-Public Use
  Company Number: US-BAYER-2021A264496

PATIENT
  Age: 62 Year
  Sex: Female

DRUGS (1)
  1. MIRALAX [Suspect]
     Active Substance: POLYETHYLENE GLYCOL 3350
     Indication: Gastrointestinal disorder
     Dosage: 17G DOSE
     Route: 048
     Dates: start: 20211204

REACTIONS (4)
  - Product use issue [Unknown]
  - Product prescribing issue [Unknown]
  - Product taste abnormal [None]
  - Product odour abnormal [None]
